FAERS Safety Report 16140317 (Version 1)
Quarter: 2019Q2

REPORT INFORMATION
  Report Type: Not Available
  Country: GB (occurrence: GB)
  Receive Date: 20190401
  Receipt Date: 20190401
  Transmission Date: 20190711
  Serious: Yes (Hospitalization, Other)
  Sender: FDA-Public Use
  Company Number: GB-SYNTHON BV-NL01PV19_48333

PATIENT
  Age: 77 Year
  Sex: Male
  Weight: 83 kg

DRUGS (11)
  1. TABPHYN [Suspect]
     Active Substance: TAMSULOSIN HYDROCHLORIDE
     Dosage: 400 MICROGRAM
     Route: 048
  2. ENTRESTO [Suspect]
     Active Substance: SACUBITRIL\VALSARTAN
     Dosage: 100 MILLIGRAM, QD
     Route: 048
     Dates: start: 20171215, end: 20180112
  3. FUROSEMIDE. [Suspect]
     Active Substance: FUROSEMIDE
     Indication: PRODUCT USED FOR UNKNOWN INDICATION
     Dosage: 40 MILLIGRAM, QD
     Route: 048
  4. FUROSEMIDE. [Suspect]
     Active Substance: FUROSEMIDE
     Dosage: 40 MILLIGRAM
     Route: 048
  5. IVABRADINE/IVABRADINE HYDROCHLORIDE [Suspect]
     Active Substance: IVABRADINE HYDROCHLORIDE
     Indication: PRODUCT USED FOR UNKNOWN INDICATION
     Dosage: 5 MILLIGRAM, QD
     Route: 048
  6. TABPHYN [Suspect]
     Active Substance: TAMSULOSIN HYDROCHLORIDE
     Dosage: 400 GRAM, QD
     Route: 048
  7. ENTRESTO [Suspect]
     Active Substance: SACUBITRIL\VALSARTAN
     Dosage: 50 MILLIGRAM, QD
     Route: 048
     Dates: start: 20171201, end: 20171215
  8. LOSARTAN. [Suspect]
     Active Substance: LOSARTAN
     Indication: PRODUCT USED FOR UNKNOWN INDICATION
     Dosage: 50 MILLIGRAM, QD
     Route: 048
  9. OMEPRAZOLE. [Suspect]
     Active Substance: OMEPRAZOLE
     Indication: PRODUCT USED FOR UNKNOWN INDICATION
     Dosage: 20 MILLIGRAM, QD
     Route: 048
  10. BISOPROLOL [Suspect]
     Active Substance: BISOPROLOL
     Indication: PRODUCT USED FOR UNKNOWN INDICATION
     Dosage: 10 MILLIGRAM, QD
     Route: 048
     Dates: start: 20180212
  11. ENTRESTO [Suspect]
     Active Substance: SACUBITRIL\VALSARTAN
     Indication: CARDIAC FAILURE
     Dosage: 200 MILLIGRAM, QD
     Dates: start: 20180112

REACTIONS (7)
  - Dyspnoea [Recovering/Resolving]
  - Chronic obstructive pulmonary disease [Not Recovered/Not Resolved]
  - Sepsis [Unknown]
  - Pneumonia [Unknown]
  - White blood cell count increased [Unknown]
  - Blood creatinine increased [Unknown]
  - C-reactive protein increased [Unknown]

NARRATIVE: CASE EVENT DATE: 20171207
